FAERS Safety Report 9721584 (Version 2)
Quarter: 2013Q4

REPORT INFORMATION
  Report Type: Spontaneous
  Country: US (occurrence: US)
  Receive Date: 20131201
  Receipt Date: 20131205
  Transmission Date: 20140711
  Serious: Yes (Other)
  Sender: FDA-Public Use
  Company Number: US-009507513-1311USA012141

PATIENT
  Sex: Female
  Weight: 54.88 kg

DRUGS (4)
  1. REMERON [Suspect]
     Indication: DEPRESSION
     Dosage: 30 MG, QD
     Route: 048
  2. LEXAPRO [Suspect]
     Indication: DEPRESSION
     Dosage: 25 MG, QD
  3. XANAX [Suspect]
     Indication: DEPRESSION
     Dosage: DOSE OF 0.5MG IN THE MORNING AND 1.5MG AT NIGHT , BID
  4. PREPARATION H HEMORRHOIDAL OINTMENT [Suspect]
     Indication: HAEMORRHOIDS
     Dosage: UNK, PRN

REACTIONS (3)
  - Hip fracture [Unknown]
  - Unevaluable event [Unknown]
  - Off label use [Unknown]
